FAERS Safety Report 4984008-3 (Version None)
Quarter: 2006Q1

REPORT INFORMATION
  Report Type: 
  Country: None (occurrence: None)
  Receive Date: 20060301
  Receipt Date: 20051110
  Transmission Date: 20060701
  Serious: No
  Sender: FDA-Public Use
  Company Number: S05-USA-04893-01

PATIENT
  Age: 89 Year
  Sex: Female

DRUGS (11)
  1. NAMENDA [Suspect]
     Indication: AMNESIA
     Dosage: 10 MG BID PO
     Route: 048
     Dates: start: 20050101
  2. NAMENDA [Suspect]
     Indication: AMNESIA
     Dosage: 5 MG QD PO
     Route: 048
     Dates: start: 20050101, end: 20050101
  3. NAMENDA [Suspect]
     Indication: AMNESIA
     Dosage: 5 MG BID PO
     Route: 048
     Dates: start: 20050101, end: 20050101
  4. NAMENDA [Suspect]
     Indication: AMNESIA
     Dosage: 15 MG QD PO
     Route: 048
     Dates: start: 20050101, end: 20050101
  5. EXELON [Concomitant]
  6. SYNTHROID [Concomitant]
  7. RELAFEN [Concomitant]
  8. NASACORT (TRIAMCINOLONE ACETATE) [Concomitant]
  9. FIBER-LAX [Concomitant]
  10. VITAMIN E [Concomitant]
  11. MULTI-VITAMIN [Concomitant]

REACTIONS (1)
  - ANXIETY [None]
